FAERS Safety Report 14038671 (Version 8)
Quarter: 2019Q4

REPORT INFORMATION
  Report Type: Report from Study
  Country: US (occurrence: US)
  Receive Date: 20171004
  Receipt Date: 20191230
  Transmission Date: 20200122
  Serious: Yes (Hospitalization, Other)
  Sender: FDA-Public Use
  Company Number: US-PFIZER INC-2017419424

PATIENT
  Age: 47 Year
  Sex: Female
  Weight: 89 kg

DRUGS (19)
  1. COREG [Concomitant]
     Active Substance: CARVEDILOL
     Indication: HYPERTENSION
     Dosage: 6.25 MG, DAILY
     Route: 048
     Dates: start: 201306
  2. LANTUS [Concomitant]
     Active Substance: INSULIN GLARGINE
     Indication: DIABETES MELLITUS
     Dosage: 48 IU, QHS
     Route: 058
     Dates: start: 201201
  3. TAMOXIFEN CITRATE. [Suspect]
     Active Substance: TAMOXIFEN CITRATE
     Indication: BREAST CANCER
     Dosage: 20 MG, QD
     Route: 048
     Dates: start: 20170130, end: 20170920
  4. LUPRON [Concomitant]
     Active Substance: LEUPROLIDE ACETATE
     Indication: BREAST CANCER
     Dosage: 22.5 MG, Q 3MONTH
     Route: 030
     Dates: start: 20170223
  5. CIPROFLOXACIN. [Concomitant]
     Active Substance: CIPROFLOXACIN
     Indication: URINARY TRACT INFECTION
     Dosage: 500 MG, BID X 5 DAYS
     Route: 048
     Dates: start: 20170627, end: 20170701
  6. CIPROFLOXACIN. [Concomitant]
     Active Substance: CIPROFLOXACIN
     Dosage: 250 MG, BID X 5 DAYS
     Route: 048
     Dates: start: 20170828, end: 20170902
  7. GABAPENTIN. [Concomitant]
     Active Substance: GABAPENTIN
     Dosage: 300 MG, QHS PRN
     Route: 048
     Dates: start: 20170126
  8. LEVOTHYROXINE. [Concomitant]
     Active Substance: LEVOTHYROXINE
     Indication: HYPOTHYROIDISM
     Dosage: 25 UG, DAILY
     Route: 048
     Dates: start: 201409
  9. DIFLUCAN [Concomitant]
     Active Substance: FLUCONAZOLE
     Indication: ANTIFUNGAL PROPHYLAXIS
     Dosage: 200 MG, DAILY X 5 DAYS
     Route: 048
     Dates: start: 20170828, end: 20170902
  10. EFFEXOR [Concomitant]
     Active Substance: VENLAFAXINE HYDROCHLORIDE
     Indication: ADJUSTMENT DISORDER WITH DEPRESSED MOOD
     Dosage: 37.5 MG, DAILY
     Route: 048
     Dates: start: 20160811
  11. GABAPENTIN. [Concomitant]
     Active Substance: GABAPENTIN
     Indication: NEUROPATHY PERIPHERAL
     Dosage: 100 MG, BID
     Route: 048
     Dates: start: 20161208
  12. PLAVIX [Concomitant]
     Active Substance: CLOPIDOGREL BISULFATE
     Indication: MYOCARDIAL INFARCTION
     Dosage: 75 MG, DAILY
     Route: 048
     Dates: start: 201306
  13. CALCIUM + VIT D [Concomitant]
     Active Substance: CALCIUM\VITAMIN D
     Indication: SUPPLEMENTATION THERAPY
     Dosage: 1 TAB [CALCIUM 600MG]/[VIT D 400IU], DAILY
     Route: 048
     Dates: start: 20170130
  14. BIOTENE MOUTHWASH [Concomitant]
     Active Substance: CETYLPYRIDINIUM CHLORIDE
     Indication: STOMATITIS
     Dosage: SWISH/SPIT PO 15ML RINSE PRN
     Route: 048
     Dates: start: 20170601
  15. HUMALOG [Concomitant]
     Active Substance: INSULIN LISPRO
     Indication: DIABETES MELLITUS
     Dosage: SLIDING SCALE
     Route: 058
     Dates: start: 201201
  16. PRAVASTATIN SODIUM. [Concomitant]
     Active Substance: PRAVASTATIN SODIUM
     Indication: HYPERLIPIDAEMIA
     Dosage: 80 MG, DAILY
     Route: 048
     Dates: start: 201306
  17. PALBOCICLIB [Suspect]
     Active Substance: PALBOCICLIB
     Indication: BREAST CANCER
     Dosage: 125 MG, 1X/DAY (QD) FOR 21 DAYS OUT OF A 28 DAY CYCLE EACH MONTH
     Route: 048
     Dates: start: 20170331, end: 20170920
  18. LISINOPRIL. [Concomitant]
     Active Substance: LISINOPRIL
     Indication: HYPERTENSION
     Dosage: 25 MG, DAILY
     Route: 048
     Dates: start: 201306
  19. LEUPROLIDE [LEUPRORELIN] [Concomitant]
     Dosage: UNK
     Dates: start: 20170223, end: 20190621

REACTIONS (1)
  - Cerebral infarction [Recovered/Resolved]

NARRATIVE: CASE EVENT DATE: 20170920
